FAERS Safety Report 8791685 (Version 1)
Quarter: 2012Q4

REPORT INFORMATION
  Report Type: 
  Country: US (occurrence: US)
  Receive Date: 20120918
  Receipt Date: 20120918
  Transmission Date: 20130627
  Serious: No
  Sender: FDA-Public Use
  Company Number: US-009507513-1208USA003483

PATIENT

DRUGS (4)
  1. PEG-INTRON [Suspect]
     Indication: HEPATITIS C
     Dosage: 120 Microgram, qw
     Route: 058
     Dates: start: 20120416, end: 20120715
  2. REBETOL [Suspect]
     Dosage: UNK
     Dates: end: 20120713
  3. TELAPREVIR [Concomitant]
     Dosage: UNK
     Dates: end: 20120713
  4. PROCRIT [Concomitant]
     Dosage: UNK
     Dates: end: 20120713

REACTIONS (2)
  - Glaucoma [Unknown]
  - Dyspnoea [Unknown]
